FAERS Safety Report 8479434-4 (Version None)
Quarter: 2012Q2

REPORT INFORMATION
  Report Type: 
  Country: None (occurrence: None)
  Receive Date: 20120629
  Receipt Date: 20120615
  Transmission Date: 20120825
  Serious: Yes (Hospitalization, Other)
  Sender: FDA-Public Use
  Company Number: US-BRISTOL-MYERS SQUIBB COMPANY-16684383

PATIENT
  Age: 33 Year
  Sex: Male

DRUGS (3)
  1. ARIPIPRAZOLE [Suspect]
     Indication: SCHIZOPHRENIA
     Route: 030
     Dates: start: 20120110, end: 20120511
  2. REMERON [Concomitant]
     Dates: start: 20111121
  3. COGENTIN [Concomitant]
     Dates: start: 20111202

REACTIONS (1)
  - SCHIZOPHRENIA, PARANOID TYPE [None]
